FAERS Safety Report 18368801 (Version 1)
Quarter: 2020Q4

REPORT INFORMATION
  Report Type: Spontaneous
  Country: FR (occurrence: FR)
  Receive Date: 20201010
  Receipt Date: 20201010
  Transmission Date: 20210114
  Serious: Yes (Life-Threatening, Hospitalization)
  Sender: FDA-Public Use
  Company Number: NVSC2020FR271598

PATIENT
  Age: 66 Year
  Sex: Male
  Weight: 76 kg

DRUGS (9)
  1. TAHOR [Concomitant]
     Active Substance: ATORVASTATIN CALCIUM
     Indication: PRODUCT USED FOR UNKNOWN INDICATION
     Dosage: (COMPRIM? PELLICUL?)
     Route: 065
  2. INEXIUM [Concomitant]
     Active Substance: ESOMEPRAZOLE
     Indication: PRODUCT USED FOR UNKNOWN INDICATION
     Dosage: (COMPRIM? GASTRO-R?SISTANT)
     Route: 065
  3. KARDEGIC [Concomitant]
     Active Substance: ASPIRIN DL-LYSINE
     Indication: PRODUCT USED FOR UNKNOWN INDICATION
     Dosage: (POUDRE POUR SOLUTION BUVABLE EN SACHET)
     Route: 065
  4. CARBOPLATIN. [Suspect]
     Active Substance: CARBOPLATIN
     Indication: LUNG ADENOCARCINOMA STAGE IV
     Dosage: 680 MG, QD
     Route: 041
     Dates: start: 20180510, end: 20180510
  5. VALSARTAN. [Concomitant]
     Active Substance: VALSARTAN
     Indication: PRODUCT USED FOR UNKNOWN INDICATION
     Dosage: UNK
     Route: 065
  6. INNOHEP [Concomitant]
     Active Substance: TINZAPARIN SODIUM
     Indication: PRODUCT USED FOR UNKNOWN INDICATION
     Dosage: UNK
     Route: 065
  7. SPECIAFOLDINE [Concomitant]
     Active Substance: FOLIC ACID
     Indication: PRODUCT USED FOR UNKNOWN INDICATION
     Dosage: (COMPRIM?)
     Route: 065
  8. NEURONTIN [Concomitant]
     Active Substance: GABAPENTIN
     Indication: PRODUCT USED FOR UNKNOWN INDICATION
     Dosage: (G?LULE)
     Route: 065
  9. ESIDREX [Concomitant]
     Active Substance: HYDROCHLOROTHIAZIDE
     Indication: PRODUCT USED FOR UNKNOWN INDICATION
     Dosage: COMPRIM?
     Route: 065

REACTIONS (6)
  - General physical health deterioration [Recovered/Resolved]
  - Abdominal pain [Recovered/Resolved]
  - Diarrhoea [Recovered/Resolved]
  - Pancytopenia [Recovered/Resolved]
  - Hyponatraemia [Recovered/Resolved]
  - Nausea [Recovered/Resolved]

NARRATIVE: CASE EVENT DATE: 20180513
